FAERS Safety Report 10905173 (Version 2)
Quarter: 2015Q2

REPORT INFORMATION
  Report Type: Spontaneous
  Country: US (occurrence: US)
  Receive Date: 20150311
  Receipt Date: 20150416
  Transmission Date: 20150821
  Serious: Yes (Other)
  Sender: FDA-Public Use
  Company Number: US-BAYER-2015-036489

PATIENT
  Age: 47 Year
  Sex: Female

DRUGS (1)
  1. CLIMARA PRO [Suspect]
     Active Substance: ESTRADIOL\LEVONORGESTREL
     Indication: HORMONE REPLACEMENT THERAPY
     Dosage: 0.045 MG/D, UNK
     Route: 062
     Dates: start: 201502, end: 20150306

REACTIONS (4)
  - Product adhesion issue [None]
  - Genital haemorrhage [None]
  - Abdominal pain [None]
  - Drug ineffective [None]
